FAERS Safety Report 4981335-0 (Version None)
Quarter: 2006Q2

REPORT INFORMATION
  Report Type: 
  Country: None (occurrence: None)
  Receive Date: 20060424
  Receipt Date: 20050912
  Transmission Date: 20061013
  Serious: Yes (Hospitalization)
  Sender: FDA-Public Use
  Company Number: US-MERCK-0509USA01573

PATIENT
  Age: 40 Year
  Sex: Female

DRUGS (4)
  1. VIOXX [Suspect]
     Indication: ARTHRITIS
     Route: 048
     Dates: start: 19990901, end: 20020208
  2. VIOXX [Suspect]
     Route: 065
     Dates: start: 19990701, end: 19990901
  3. VIOXX [Suspect]
     Indication: OSTEOARTHRITIS
     Route: 048
     Dates: start: 19990901, end: 20020208
  4. VIOXX [Suspect]
     Route: 065
     Dates: start: 19990701, end: 19990901

REACTIONS (12)
  - ARTERIOSCLEROSIS [None]
  - BIPOLAR DISORDER [None]
  - CHEST PAIN [None]
  - DYSPNOEA EXERTIONAL [None]
  - EAR INFECTION [None]
  - INSOMNIA [None]
  - MASTOIDITIS [None]
  - MYOCARDIAL INFARCTION [None]
  - OEDEMA PERIPHERAL [None]
  - PLANTAR FASCIITIS [None]
  - SINUS CONGESTION [None]
  - SINUS DISORDER [None]
